FAERS Safety Report 5477055-9 (Version None)
Quarter: 2007Q4

REPORT INFORMATION
  Report Type: 
  Country: None (occurrence: None)
  Receive Date: 20071004
  Receipt Date: 20070927
  Transmission Date: 20080405
  Serious: Yes (Death, Hospitalization)
  Sender: FDA-Public Use
  Company Number: DE-MERCK-0709USA00686

PATIENT
  Age: 47 Year
  Sex: Female

DRUGS (7)
  1. DECADRON [Suspect]
     Indication: PROPHYLAXIS
     Route: 048
  2. DECADRON [Suspect]
     Route: 048
  3. DECADRON [Suspect]
     Route: 048
  4. DECADRON [Suspect]
     Route: 048
  5. DECADRON [Suspect]
     Route: 048
  6. PHENYTOIN [Concomitant]
     Route: 065
  7. ACYCLOVIR [Concomitant]
     Route: 065

REACTIONS (8)
  - COMA [None]
  - DEATH [None]
  - ENCEPHALITIS HERPES [None]
  - GRAND MAL CONVULSION [None]
  - OESOPHAGEAL CANDIDIASIS [None]
  - PNEUMONIA KLEBSIELLA [None]
  - PULMONARY EMBOLISM [None]
  - RESPIRATORY FAILURE [None]
